FAERS Safety Report 19951036 (Version 1)
Quarter: 2021Q4

REPORT INFORMATION
  Report Type: Spontaneous
  Country: FR (occurrence: FR)
  Receive Date: 20211014
  Receipt Date: 20211014
  Transmission Date: 20220303
  Serious: Yes (Hospitalization)
  Sender: FDA-Public Use
  Company Number: FR-ABBVIE-21K-056-4117693-00

PATIENT
  Age: 53 Year
  Sex: Male

DRUGS (2)
  1. VALPROATE SODIUM [Suspect]
     Active Substance: VALPROATE SODIUM
     Indication: Poisoning deliberate
     Route: 048
     Dates: start: 20190105, end: 20190105
  2. CLOBAZAM [Suspect]
     Active Substance: CLOBAZAM
     Indication: Poisoning deliberate
     Route: 065
     Dates: start: 20190105, end: 20190105

REACTIONS (4)
  - Poisoning deliberate [Recovered/Resolved]
  - Hypotension [Recovered/Resolved]
  - Extrapyramidal disorder [Recovered/Resolved]
  - Overdose [Unknown]

NARRATIVE: CASE EVENT DATE: 20190106
